FAERS Safety Report 20632040 (Version 1)
Quarter: 2022Q1

REPORT INFORMATION
  Report Type: Spontaneous
  Country: US (occurrence: None)
  Receive Date: 20220324
  Receipt Date: 20220324
  Transmission Date: 20220423
  Serious: No
  Sender: FDA-Public Use
  Company Number: None

PATIENT
  Sex: Female

DRUGS (1)
  1. OPSUMIT [Suspect]
     Active Substance: MACITENTAN
     Indication: Pulmonary arterial hypertension
     Dosage: 10MG DAILY ORAL
     Route: 048
     Dates: start: 20220127, end: 20220324

REACTIONS (7)
  - Nasal congestion [None]
  - Thrombosis [None]
  - Dry mouth [None]
  - Gingival pain [None]
  - Oropharyngeal pain [None]
  - Decreased appetite [None]
  - Therapy cessation [None]
